FAERS Safety Report 7951145-0 (Version None)
Quarter: 2011Q4

REPORT INFORMATION
  Report Type: 
  Country: None (occurrence: None)
  Receive Date: 20111201
  Receipt Date: 20111122
  Transmission Date: 20120403
  Serious: Yes (Hospitalization)
  Sender: FDA-Public Use
  Company Number: US-VERTEX PHARMACEUTICALS INC.-AE-2011-003924

PATIENT
  Age: 58 Year
  Sex: Male
  Weight: 79.45 kg

DRUGS (3)
  1. INCIVEK [Suspect]
     Dates: start: 20110916
  2. RIBAVIRIN [Concomitant]
     Dates: start: 20110916
  3. PEGASYS [Concomitant]
     Dates: start: 20110916

REACTIONS (4)
  - RASH PRURITIC [None]
  - DEHYDRATION [None]
  - DIARRHOEA [None]
  - HAEMORRHOIDS [None]
